FAERS Safety Report 24452115 (Version 1)
Quarter: 2024Q4

REPORT INFORMATION
  Report Type: Spontaneous
  Country: US (occurrence: US)
  Receive Date: 20241017
  Receipt Date: 20241017
  Transmission Date: 20250115
  Serious: Yes (Hospitalization)
  Sender: RIGEL PHARMACEUTICALS
  Company Number: US-RIGEL Pharmaceuticals INC-20240900115

PATIENT
  Sex: Male

DRUGS (2)
  1. REZLIDHIA [Suspect]
     Active Substance: OLUTASIDENIB
     Indication: Brain neoplasm malignant
     Dosage: 150 MG, BID
     Route: 048
     Dates: start: 20240210
  2. LYNPARZA [Concomitant]
     Active Substance: OLAPARIB
     Indication: Brain neoplasm malignant
     Dosage: 150 MG, QD
     Route: 048
     Dates: start: 20240402

REACTIONS (4)
  - Hospitalisation [Unknown]
  - Adverse drug reaction [Unknown]
  - Off label use [Unknown]
  - Product prescribing issue [Unknown]

NARRATIVE: CASE EVENT DATE: 20240101
